FAERS Safety Report 9202210 (Version 1)
Quarter: 2013Q2

REPORT INFORMATION
  Report Type: Spontaneous
  Country: US (occurrence: US)
  Receive Date: 20130401
  Receipt Date: 20130401
  Transmission Date: 20140414
  Serious: No
  Sender: FDA-Public Use
  Company Number: US-009507513-1303USA009615

PATIENT
  Sex: 0

DRUGS (2)
  1. NITROGLYCERIN [Suspect]
  2. NITRO-DUR [Suspect]
     Dosage: UNK

REACTIONS (3)
  - Drug hypersensitivity [Unknown]
  - Drug dose omission [Unknown]
  - Product quality issue [Unknown]
